FAERS Safety Report 7680194-5 (Version None)
Quarter: 2011Q3

REPORT INFORMATION
  Report Type: 
  Country: None (occurrence: None)
  Receive Date: 20110812
  Receipt Date: 20110805
  Transmission Date: 20111222
  Serious: Yes (Hospitalization)
  Sender: FDA-Public Use
  Company Number: FR-ROCHE-795357

PATIENT
  Sex: Female

DRUGS (20)
  1. CELLCEPT [Suspect]
     Route: 048
     Dates: start: 20110301
  2. CYCLOSPORINE [Concomitant]
     Dosage: BY ELECTRIC SYRINGE
     Route: 042
  3. MOPRAL 20 [Concomitant]
     Dosage: FREQUENCY:DAILY
     Route: 048
  4. VANCOMYCIN [Concomitant]
  5. HEPARIN [Concomitant]
     Dosage: BY ELECTRIC SYRINGE
     Route: 042
  6. GANCICLOVIR SODIUM [Suspect]
     Dosage: FREQUENCY:DAILY
     Route: 042
     Dates: start: 20110429, end: 20110607
  7. NEORAL [Suspect]
     Route: 048
     Dates: start: 20110301
  8. FLUCONAZOLE [Concomitant]
     Dosage: FREQUENCY:DAILY
     Route: 048
     Dates: start: 20110306
  9. RAMIPRIL [Concomitant]
  10. CIPROFLOXACIN [Concomitant]
  11. PRIMPERAN TAB [Concomitant]
  12. AMOXICILLIN TRIHYDRATE [Suspect]
     Indication: PROPHYLAXIS
     Route: 048
     Dates: start: 20110301
  13. OMEPRAZOLE [Concomitant]
  14. GELOX [Concomitant]
     Dosage: REPORTED AS 3 SACHETS/DAY
  15. CEFTAZIDIME SODIUM [Concomitant]
  16. FLUCONAZOLE [Concomitant]
  17. ZOVIRAX [Concomitant]
  18. MYCOSTATIN [Concomitant]
     Dosage: REPORTED AS 2 FLASKS/DAY
  19. ONDANSERTRON HYDROCHLORIDE [Concomitant]
     Dosage: REPORTED AS 8 MG 2 AMPOULES/DAY BY ELECTRIC SYRINGE
  20. TRANXENE [Concomitant]

REACTIONS (1)
  - EPILEPSY [None]
